FAERS Safety Report 14362875 (Version 2)
Quarter: 2018Q1

REPORT INFORMATION
  Report Type: Spontaneous
  Country: US (occurrence: US)
  Receive Date: 20180108
  Receipt Date: 20180224
  Transmission Date: 20180509
  Serious: No
  Sender: FDA-Public Use
  Company Number: US-JNJFOC-20171221605

PATIENT
  Age: 28 Year
  Sex: Female
  Weight: 71.9 kg

DRUGS (15)
  1. ALLOPURINOL. [Concomitant]
     Active Substance: ALLOPURINOL
     Route: 048
  2. ZOFRAN [Concomitant]
     Active Substance: ONDANSETRON HYDROCHLORIDE
     Indication: NAUSEA
     Dosage: PLACE TABLET ON TONGUE EVERY 8 HOURS AS NEEDED FOR NAUSEA, DISSOLVE ON TONGUE.
     Route: 048
  3. ALBUTEROL. [Concomitant]
     Active Substance: ALBUTEROL
     Indication: WHEEZING
     Route: 048
  4. TRAZODONE [Concomitant]
     Active Substance: TRAZODONE HYDROCHLORIDE
     Dosage: ONE TABLET AT BEDTIME.
     Route: 065
  5. LORAZEPAM. [Concomitant]
     Active Substance: LORAZEPAM
     Route: 048
  6. PRILOSEC [Concomitant]
     Active Substance: OMEPRAZOLE MAGNESIUM
     Route: 065
  7. OXYCODONE [Concomitant]
     Active Substance: OXYCODONE
     Indication: PAIN
     Dosage: 1 OR 2 TABLETS BY MOUTH EVERY 4 HOURS.
     Route: 048
  8. IMITREX [Concomitant]
     Active Substance: SUMATRIPTAN SUCCINATE
     Dosage: 1 TABLET ONE TIME ONLY, MAY REPEAT IN 2 HOURS AS NEEDED
     Route: 048
  9. LEVONORGESTREL AND ETHINYL ESTRADIOL [Concomitant]
     Active Substance: ETHINYL ESTRADIOL\LEVONORGESTREL
     Indication: MENSTRUAL DISORDER
     Dosage: 0.15-30 MG-MCG PER TABLET.
     Route: 048
  10. STELARA [Suspect]
     Active Substance: USTEKINUMAB
     Indication: CROHN^S DISEASE
     Route: 042
     Dates: start: 20171214, end: 20171214
  11. BENTYL [Concomitant]
     Active Substance: DICYCLOMINE HYDROCHLORIDE
     Route: 048
  12. IMURAN [Concomitant]
     Active Substance: AZATHIOPRINE
     Route: 048
  13. VITAMIN D [Concomitant]
     Active Substance: CHOLECALCIFEROL
     Route: 065
  14. CALCIUM [Concomitant]
     Active Substance: CALCIUM
     Dosage: 600-200 MG, 1 TABLET TWICE DAILY WITH FOOD
     Route: 048
  15. OMEPRAZOLE. [Concomitant]
     Active Substance: OMEPRAZOLE
     Route: 048

REACTIONS (10)
  - Hypertension [Recovered/Resolved with Sequelae]
  - Flushing [Recovered/Resolved with Sequelae]
  - Chest pain [Recovered/Resolved]
  - Infusion related reaction [Recovered/Resolved]
  - Dyspnoea [Recovered/Resolved]
  - Arthralgia [Recovered/Resolved]
  - Myalgia [Recovered/Resolved]
  - Throat tightness [Recovered/Resolved with Sequelae]
  - Back pain [Recovered/Resolved]
  - Nausea [Recovered/Resolved with Sequelae]

NARRATIVE: CASE EVENT DATE: 20171214
